FAERS Safety Report 6040370-4 (Version None)
Quarter: 2009Q1

REPORT INFORMATION
  Report Type: 
  Country: None (occurrence: None)
  Receive Date: 20090116
  Receipt Date: 20080228
  Transmission Date: 20090719
  Serious: No
  Sender: FDA-Public Use
  Company Number: US-BRISTOL-MYERS SQUIBB COMPANY-14096887

PATIENT
  Age: 65 Year
  Sex: Male

DRUGS (3)
  1. ABILIFY [Suspect]
     Indication: DEPRESSION
  2. ABILIFY [Suspect]
     Indication: AGITATION
  3. ABILIFY [Suspect]
     Indication: INSOMNIA

REACTIONS (1)
  - TARDIVE DYSKINESIA [None]
